FAERS Safety Report 5832055-1 (Version None)
Quarter: 2008Q3

REPORT INFORMATION
  Report Type: 
  Country: None (occurrence: None)
  Receive Date: 20080731
  Receipt Date: 20080731
  Transmission Date: 20090109
  Serious: Yes (Other)
  Sender: FDA-Public Use
  Company Number: None

PATIENT
  Age: 27 Year
  Sex: Female
  Weight: 63.5036 kg

DRUGS (2)
  1. MIRENA [Suspect]
     Indication: CONTRACEPTION
     Dosage: ONCE  INTRA-UTERINE  (DURATION: A LITTLE OVER A MONTH)
     Route: 015
     Dates: start: 20071001, end: 20071101
  2. MIRENA [Suspect]
     Indication: HAEMORRHAGE
     Dosage: ONCE  INTRA-UTERINE  (DURATION: A LITTLE OVER A MONTH)
     Route: 015
     Dates: start: 20071001, end: 20071101

REACTIONS (8)
  - DIZZINESS [None]
  - DYSPNOEA [None]
  - IRRITABILITY [None]
  - MENORRHAGIA [None]
  - NAUSEA [None]
  - NIGHT SWEATS [None]
  - PELVIC PAIN [None]
  - VOMITING [None]
